FAERS Safety Report 25310666 (Version 2)
Quarter: 2025Q2

REPORT INFORMATION
  Report Type: Report from Study
  Country: US (occurrence: US)
  Receive Date: 20250514
  Receipt Date: 20250612
  Transmission Date: 20250716
  Serious: No
  Sender: SUNOVION
  Company Number: US-SMPA-2025SPA004756AA

PATIENT

DRUGS (4)
  1. ORGOVYX [Suspect]
     Active Substance: RELUGOLIX
     Indication: Prostate cancer
     Dosage: 360 MG, SINGLE
     Route: 048
     Dates: start: 20250306, end: 20250306
  2. ORGOVYX [Suspect]
     Active Substance: RELUGOLIX
     Dosage: 120 MG, QD
     Route: 048
     Dates: start: 20250307
  3. ALLOPURINOL [Concomitant]
     Active Substance: ALLOPURINOL
     Indication: Product used for unknown indication
     Route: 065
  4. TADALAFIL [Concomitant]
     Active Substance: TADALAFIL
     Route: 065

REACTIONS (8)
  - Micturition urgency [Unknown]
  - Ejaculation failure [Unknown]
  - Erectile dysfunction [Unknown]
  - Hot flush [Unknown]
  - Weight increased [Unknown]
  - Back pain [Unknown]
  - Pain in extremity [Unknown]
  - Depression [Unknown]
